FAERS Safety Report 4985607-5 (Version None)
Quarter: 2006Q2

REPORT INFORMATION
  Report Type: 
  Country: None (occurrence: None)
  Receive Date: 20060428
  Receipt Date: 20060420
  Transmission Date: 20061013
  Serious: Yes (Other)
  Sender: FDA-Public Use
  Company Number: NO-JNJFOC-20040908506

PATIENT
  Age: 14 Year
  Sex: Female

DRUGS (5)
  1. REMICADE [Suspect]
     Dosage: 3RD INFUSION  -  4TH INFUSION EXPECTED TO BE TAKEN 28TH SEPTEMBTER 2004
     Route: 042
  2. REMICADE [Suspect]
     Dosage: 2ND INFUSION
     Route: 042
  3. REMICADE [Suspect]
     Indication: JUVENILE ARTHRITIS
     Dosage: 1ST INFUSION
     Route: 042
  4. PARACETAMOL [Concomitant]
  5. IBUPROFEN [Concomitant]
     Dosage: 400 MG MORNING  400 MG MID-DAY  600 MG EVENING

REACTIONS (1)
  - HEPATIC ENZYME INCREASED [None]
